FAERS Safety Report 12765445 (Version 1)
Quarter: 2016Q3

REPORT INFORMATION
  Report Type: Spontaneous
  Country: GB (occurrence: GB)
  Receive Date: 20160921
  Receipt Date: 20160921
  Transmission Date: 20161109
  Serious: Yes (Life-Threatening, Hospitalization)
  Sender: FDA-Public Use
  Company Number: GB-ACCORD-044167

PATIENT
  Age: 85 Year
  Sex: Female
  Weight: 86 kg

DRUGS (10)
  1. MIRTAZAPINE. [Concomitant]
     Active Substance: MIRTAZAPINE
  2. PRAVASTATIN/PRAVASTATIN SODIUM [Concomitant]
  3. CANDESARTAN/CANDESARTAN CILEXETIL [Concomitant]
  4. RIVASTIGMINE/RIVASTIGMINE TARTRATE [Concomitant]
  5. ISOTARD XL [Concomitant]
  6. NICORANDIL [Concomitant]
     Active Substance: NICORANDIL
  7. SERTRALINE [Suspect]
     Active Substance: SERTRALINE HYDROCHLORIDE
     Indication: ANXIETY
     Route: 048
     Dates: start: 20160616, end: 20160622
  8. ASPIRIN. [Concomitant]
     Active Substance: ASPIRIN
  9. DOCUSATE/DOCUSATE CALCIUM/DOCUSATE POTASSIUM/DOCUSATE SODIUM [Concomitant]
  10. OMEPRAZOLE. [Concomitant]
     Active Substance: OMEPRAZOLE

REACTIONS (2)
  - Pneumonia aspiration [Recovered/Resolved with Sequelae]
  - Vomiting [Recovered/Resolved with Sequelae]

NARRATIVE: CASE EVENT DATE: 20160618
